FAERS Safety Report 16111567 (Version 1)
Quarter: 2019Q1

REPORT INFORMATION
  Report Type: Spontaneous
  Country: US (occurrence: US)
  Receive Date: 20190222
  Receipt Date: 20190222
  Transmission Date: 20190418
  Serious: No
  Sender: FDA-Public Use
  Company Number: None

PATIENT
  Age: 46 Year
  Sex: Female

DRUGS (1)
  1. STELARA [Suspect]
     Active Substance: USTEKINUMAB
     Dosage: OTHER
     Route: 058
     Dates: start: 201802

REACTIONS (4)
  - Ulcer [None]
  - Inflammation [None]
  - Sigmoidoscopy abnormal [None]
  - Erythema [None]

NARRATIVE: CASE EVENT DATE: 20190222
